FAERS Safety Report 25689958 (Version 1)
Quarter: 2025Q3

REPORT INFORMATION
  Report Type: Spontaneous
  Country: CN (occurrence: CN)
  Receive Date: 20250818
  Receipt Date: 20250818
  Transmission Date: 20251021
  Serious: Yes (Life-Threatening, Other)
  Sender: SANOFI AVENTIS
  Company Number: CN-SA-2025SA239497

PATIENT
  Age: 57 Year
  Sex: Male

DRUGS (12)
  1. OXALIPLATIN [Suspect]
     Active Substance: OXALIPLATIN
     Indication: Metastatic lymphoma
     Dosage: 180 MG, QD ON DAY 1
     Dates: start: 20220816
  2. OXALIPLATIN [Suspect]
     Active Substance: OXALIPLATIN
     Indication: Metastases to bone
     Dosage: 0.15 G, QW ON DAY 1 AND 8
     Dates: start: 20221102
  3. OXALIPLATIN [Suspect]
     Active Substance: OXALIPLATIN
     Indication: Adenocarcinoma metastatic
  4. GEMCITABINE [Suspect]
     Active Substance: GEMCITABINE
     Indication: Metastases to bone
     Dosage: 1.6 G, QD ON DAY 1
  5. GEMCITABINE [Suspect]
     Active Substance: GEMCITABINE
     Indication: Metastatic lymphoma
     Dosage: 1.4 G, QW ON DAY 1 AND 8
  6. GEMCITABINE [Suspect]
     Active Substance: GEMCITABINE
     Indication: Adenocarcinoma metastatic
  7. TISLELIZUMAB [Suspect]
     Active Substance: TISLELIZUMAB
     Indication: Metastases to bone
     Dosage: 200 MG, QD ON DAY 1
  8. TISLELIZUMAB [Suspect]
     Active Substance: TISLELIZUMAB
     Indication: Adenocarcinoma metastatic
  9. TISLELIZUMAB [Suspect]
     Active Substance: TISLELIZUMAB
     Indication: Metastatic lymphoma
  10. DEXMEDETOMIDINE [Concomitant]
     Active Substance: DEXMEDETOMIDINE
     Indication: Adenocarcinoma metastatic
     Route: 058
     Dates: start: 20220602
  11. DEXMEDETOMIDINE [Concomitant]
     Active Substance: DEXMEDETOMIDINE
     Indication: Metastatic lymphoma
  12. DEXMEDETOMIDINE [Concomitant]
     Active Substance: DEXMEDETOMIDINE
     Indication: Metastases to bone

REACTIONS (4)
  - Immune-mediated hepatitis [Unknown]
  - Fatigue [Unknown]
  - Off label use [Unknown]
  - Myelosuppression [Unknown]

NARRATIVE: CASE EVENT DATE: 20220101
